FAERS Safety Report 10821642 (Version 2)
Quarter: 2015Q1

REPORT INFORMATION
  Report Type: Report from Study
  Country: US (occurrence: US)
  Receive Date: 20150218
  Receipt Date: 20150221
  Transmission Date: 20150721
  Serious: No
  Sender: FDA-Public Use
  Company Number: US-ABBVIE-14K-163-1304670-00

PATIENT
  Age: 69 Year
  Sex: Female

DRUGS (3)
  1. NAPROSYN [Suspect]
     Active Substance: NAPROXEN
     Indication: PAIN
     Dosage: ONE EVERY 12 HOURS
     Route: 065
  2. HUMIRA [Suspect]
     Active Substance: ADALIMUMAB
     Indication: RHEUMATOID ARTHRITIS
     Route: 065
  3. PERCOCET [Suspect]
     Active Substance: ACETAMINOPHEN\OXYCODONE HYDROCHLORIDE
     Indication: PAIN
     Dosage: ONE EVERY SIX HOURS
     Route: 065

REACTIONS (5)
  - Constipation [Unknown]
  - Pain [Not Recovered/Not Resolved]
  - Rib fracture [Recovering/Resolving]
  - Foot fracture [Recovering/Resolving]
  - Fall [Recovering/Resolving]

NARRATIVE: CASE EVENT DATE: 2014
